FAERS Safety Report 8906844 (Version 1)
Quarter: 2012Q4

REPORT INFORMATION
  Report Type: 
  Country: ES (occurrence: ES)
  Receive Date: 20121114
  Receipt Date: 20121114
  Transmission Date: 20130627
  Serious: Yes (Hospitalization, Other)
  Sender: FDA-Public Use
  Company Number: ES-ELI_LILLY_AND_COMPANY-ES201211001993

PATIENT
  Sex: Female
  Weight: 77 kg

DRUGS (9)
  1. FORSTEO [Suspect]
     Dosage: 20 ug, qd
     Route: 058
     Dates: start: 20120202
  2. EUTIROX [Concomitant]
     Indication: HYPOTHYROIDISM
     Dosage: UNK, other (mond and sat)
     Route: 048
     Dates: start: 2004
  3. EUTIROX [Concomitant]
     Dosage: 100 ug, other (sunday)
     Dates: start: 2004
  4. VALSARTAN/HCT [Concomitant]
     Indication: HYPERTENSION
     Dosage: UNK UNK, qd
     Route: 048
     Dates: start: 201202
  5. CRESTOR [Concomitant]
     Indication: HYPERCHOLESTEROLAEMIA
     Dosage: 5 mg, qd
     Route: 048
     Dates: start: 201208
  6. METFORMIN [Concomitant]
     Indication: HYPERGLYCAEMIA
     Dosage: 850 mg, other
     Route: 048
     Dates: start: 201208
  7. CELEBREX [Concomitant]
     Indication: PAIN
     Dosage: 200 mg, qd
     Route: 048
     Dates: start: 201209
  8. BEMOLAN [Concomitant]
     Indication: HIATUS HERNIA
     Dosage: UNK, qd
     Route: 048
     Dates: start: 2010
  9. LANSOPRAZOL [Concomitant]
     Indication: HIATUS HERNIA
     Dosage: 15 mg, qd
     Route: 048
     Dates: start: 2010

REACTIONS (4)
  - Fall [Recovered/Resolved]
  - Syncope [Recovered/Resolved]
  - Thyroid function test abnormal [Recovered/Resolved]
  - Injury [Unknown]
